FAERS Safety Report 8789141 (Version 1)
Quarter: 2012Q4

REPORT INFORMATION
  Report Type: Spontaneous
  Country: US (occurrence: None)
  Receive Date: 20120910
  Receipt Date: 20120910
  Transmission Date: 20130627
  Serious: No
  Sender: FDA-Public Use
  Company Number: None

PATIENT
  Age: 71 Year
  Sex: Female
  Weight: 77.11 kg

DRUGS (1)
  1. RECLAST [Suspect]

REACTIONS (5)
  - Gait disturbance [None]
  - Dry throat [None]
  - Oral pain [None]
  - Gingival pain [None]
  - Tooth fracture [None]
